FAERS Safety Report 10986962 (Version 1)
Quarter: 2015Q1

REPORT INFORMATION
  Report Type: Spontaneous
  Country: US (occurrence: None)
  Receive Date: 20150304
  Receipt Date: 20150304
  Transmission Date: 20150721
  Serious: Yes (Other)
  Sender: FDA-Public Use
  Company Number: 2014TUS006117

PATIENT
  Age: 50 Year
  Sex: Male
  Weight: 92.1 kg

DRUGS (6)
  1. PREVACID [Suspect]
     Active Substance: LANSOPRAZOLE
     Indication: GASTROOESOPHAGEAL REFLUX DISEASE
     Dates: start: 2001
  2. ATENOLOL. [Concomitant]
     Active Substance: ATENOLOL
  3. RAMIPRIL. [Concomitant]
     Active Substance: RAMIPRIL
  4. METFORMIN [Concomitant]
     Active Substance: METFORMIN HYDROCHLORIDE
  5. SYMBICORT [Concomitant]
     Active Substance: BUDESONIDE\FORMOTEROL FUMARATE DIHYDRATE
  6. NASALCROM (CROMOGLICATE SODIUM) [Concomitant]

REACTIONS (5)
  - Blood potassium decreased [None]
  - Drug ineffective [None]
  - Abdominal pain upper [None]
  - Cerebral haemorrhage [None]
  - Muscle spasms [None]

NARRATIVE: CASE EVENT DATE: 2001
